FAERS Safety Report 8880120 (Version 1)
Quarter: 2012Q4

REPORT INFORMATION
  Report Type: 
  Country: US (occurrence: US)
  Receive Date: 20121031
  Receipt Date: 20121031
  Transmission Date: 20130627
  Serious: Yes (Other)
  Sender: FDA-Public Use
  Company Number: US-ROCHE-1139667

PATIENT
  Sex: Male
  Weight: 42.5 kg

DRUGS (3)
  1. PROTROPIN [Suspect]
     Indication: GROWTH HORMONE DEFICIENCY
     Route: 058
     Dates: start: 19900609
  2. PROTROPIN [Suspect]
     Indication: DWARFISM
     Route: 058
  3. PROTROPIN [Suspect]
     Route: 058

REACTIONS (7)
  - Fracture [Unknown]
  - Haemoptysis [Unknown]
  - Hydroxyproline increased [Unknown]
  - Osteocalcin increased [Unknown]
  - Osteosclerosis [Unknown]
  - Eosinophil count increased [Unknown]
  - Blood alkaline phosphatase increased [Unknown]
